FAERS Safety Report 7097811-3 (Version None)
Quarter: 2010Q4

REPORT INFORMATION
  Report Type: 
  Country: None (occurrence: None)
  Receive Date: 20101112
  Receipt Date: 20101103
  Transmission Date: 20110411
  Serious: Yes (Hospitalization)
  Sender: FDA-Public Use
  Company Number: ES-ELI_LILLY_AND_COMPANY-ES201011000950

PATIENT
  Sex: Female

DRUGS (9)
  1. FORTEO [Suspect]
     Indication: OSTEOPOROSIS
     Dosage: 20 UG, DAILY (1/D)
     Route: 058
     Dates: start: 20101021
  2. HIDROSALURETIL [Concomitant]
     Indication: HYPERTENSION
     Dosage: UNK, EACH MORNING
     Route: 048
  3. IDEOS [Concomitant]
     Indication: BLOOD CALCIUM
     Dosage: UNK, 2/D
     Route: 048
  4. LORMETAZEPAM [Concomitant]
     Indication: SLEEP DISORDER
     Dosage: 2 MG, EACH EVENING
     Route: 048
  5. BILINA [Concomitant]
     Dosage: UNK, AS NEEDED
     Route: 047
  6. EBASTINE [Concomitant]
     Indication: HYPERSENSITIVITY
     Dosage: UNK, EACH EVENING
     Route: 048
  7. CARBOMER [Concomitant]
     Indication: EYE DISORDER
     Dosage: ONE DROP, EACH EVENING
     Route: 047
  8. PAROXETINE HCL [Concomitant]
     Indication: DEPRESSION
     Dosage: 50 MG, EACH MORNING
     Route: 048
  9. VISCOFRESH [Concomitant]
     Dosage: IF DRYNESS IN EYE OCCURS, EYE DROPS
     Route: 047

REACTIONS (2)
  - FALL [None]
  - UPPER LIMB FRACTURE [None]
